FAERS Safety Report 20649912 (Version 1)
Quarter: 2022Q1

REPORT INFORMATION
  Report Type: Spontaneous
  Country: US (occurrence: US)
  Receive Date: 20220329
  Receipt Date: 20220329
  Transmission Date: 20220423
  Serious: Yes (Death)
  Sender: FDA-Public Use
  Company Number: US-BAYER-2022A043122

PATIENT
  Age: 30 Year
  Sex: Female

DRUGS (6)
  1. ACARBOSE [Suspect]
     Active Substance: ACARBOSE
     Indication: Hyperammonaemia
  2. POLYETHYLENE GLYCOL 3350 [Suspect]
     Active Substance: POLYETHYLENE GLYCOL 3350
     Indication: Hyperammonaemia
  3. LACTULOSE [Concomitant]
     Active Substance: LACTULOSE
  4. LEVOCARNITINE [Concomitant]
     Active Substance: LEVOCARNITINE
  5. RIFAXIMIN [Concomitant]
     Active Substance: RIFAXIMIN
  6. SODIUM BENZOATE [Concomitant]
     Active Substance: SODIUM BENZOATE

REACTIONS (2)
  - Death [Fatal]
  - Off label use [None]
